FAERS Safety Report 5929085-8 (Version None)
Quarter: 2008Q4

REPORT INFORMATION
  Report Type: 
  Country: None (occurrence: None)
  Receive Date: 20081024
  Receipt Date: 20081014
  Transmission Date: 20090506
  Serious: Yes (Death, Hospitalization, Other)
  Sender: FDA-Public Use
  Company Number: US-JNJFOC-20080803837

PATIENT
  Sex: Female
  Weight: 54.89 kg

DRUGS (19)
  1. REMICADE [Suspect]
     Route: 042
  2. REMICADE [Suspect]
     Indication: RHEUMATOID ARTHRITIS
     Route: 042
  3. METHOTREXATE [Concomitant]
     Indication: RHEUMATOID ARTHRITIS
  4. STEROID [Concomitant]
     Indication: RHEUMATOID ARTHRITIS
  5. NEURONTIN [Concomitant]
     Route: 048
  6. DARVOCET-N 100 [Concomitant]
  7. MEDROL [Concomitant]
  8. VITAMIN D [Concomitant]
  9. ATARAX [Concomitant]
  10. NORVASC [Concomitant]
  11. PHENERGAN HCL [Concomitant]
  12. ZOLOFT [Concomitant]
  13. PREMARIN [Concomitant]
  14. ZIAC [Concomitant]
     Route: 048
  15. DETROL LA [Concomitant]
  16. ZANAFLEX [Concomitant]
  17. FOLIC ACID [Concomitant]
  18. NEXIUM [Concomitant]
  19. ESTRATEST [Concomitant]

REACTIONS (8)
  - ACUTE RESPIRATORY DISTRESS SYNDROME [None]
  - ANAEMIA [None]
  - CHRONIC OBSTRUCTIVE PULMONARY DISEASE [None]
  - ILEUS [None]
  - LEGIONELLA INFECTION [None]
  - PNEUMONIA [None]
  - SEPTIC SHOCK [None]
  - STAPHYLOCOCCAL INFECTION [None]
